FAERS Safety Report 4338195-0 (Version None)
Quarter: 2004Q2

REPORT INFORMATION
  Report Type: 
  Country: None (occurrence: None)
  Receive Date: 20040413
  Receipt Date: 20040413
  Transmission Date: 20050107
  Serious: Yes (Hospitalization)
  Sender: FDA-Public Use
  Company Number: None

PATIENT
  Sex: Male
  Weight: 128.368 kg

DRUGS (4)
  1. CISPLATIN [Suspect]
     Indication: BILE DUCT CANCER
     Dosage: 68 MG DAY 1 AND IV
     Route: 042
     Dates: start: 20040406, end: 20040406
  2. CISPLATIN [Suspect]
     Indication: METASTATIC NEOPLASM
     Dosage: 68 MG DAY 1 AND IV
     Route: 042
     Dates: start: 20040406, end: 20040406
  3. GEMZAR [Suspect]
     Indication: BILE DUCT CANCER
     Dosage: 2270 MG DAY 1 AMD IV
     Route: 042
     Dates: start: 20040406, end: 20040406
  4. GEMZAR [Suspect]
     Indication: METASTATIC NEOPLASM
     Dosage: 2270 MG DAY 1 AMD IV
     Route: 042
     Dates: start: 20040406, end: 20040406

REACTIONS (1)
  - MYOCARDIAL INFARCTION [None]
